FAERS Safety Report 5104202-0 (Version None)
Quarter: 2006Q3

REPORT INFORMATION
  Report Type: 
  Country: None (occurrence: None)
  Receive Date: 20060911
  Receipt Date: 20060901
  Transmission Date: 20061208
  Serious: Yes (Other)
  Sender: FDA-Public Use
  Company Number: 2006106210

PATIENT
  Age: 64 Year
  Sex: Male
  Weight: 85.7298 kg

DRUGS (2)
  1. LISTERINE ANTISEPTIC MOUTHWASH (MENTHOL, METHYL SALICYLATE, EUCALYPTOL [Suspect]
     Indication: DENTAL DISORDER PROPHYLAXIS
     Dosage: ORAL
     Route: 048
  2. POLYSPORIN PAIN AND ITCH RELIEF (ZINC ACETATE, PRAMOXINE) [Suspect]
     Indication: ARTHROPOD BITE
     Dosage: SMALL AMOUNT AS NEEDED, TOPICAL
     Route: 061
     Dates: start: 20040101

REACTIONS (2)
  - ARTHROPOD BITE [None]
  - SQUAMOUS CELL CARCINOMA [None]
